FAERS Safety Report 8601650 (Version 4)
Quarter: 2013Q2

REPORT INFORMATION
  Report Type: Spontaneous
  Country: US (occurrence: US)
  Receive Date: 20120606
  Receipt Date: 20130417
  Transmission Date: 20140414
  Serious: Yes (Hospitalization, Other)
  Sender: FDA-Public Use
  Company Number: US-ELI_LILLY_AND_COMPANY-US201202004263

PATIENT
  Age: 68 Year
  Sex: Female

DRUGS (14)
  1. FORTEO [Suspect]
     Indication: OSTEOPOROSIS
     Dosage: 20 UG, QD
     Route: 065
     Dates: start: 20120116
  2. FORTEO [Suspect]
     Dosage: 20 UG, QD
     Route: 065
     Dates: start: 20120116
  3. FORTEO [Suspect]
     Dosage: 20 UG, QD
     Dates: start: 20120116
  4. FORTEO [Suspect]
     Dosage: 20 UG, QD
     Route: 065
     Dates: start: 20120116
  5. FORTEO [Suspect]
     Dosage: UNK, QD
     Dates: start: 201201
  6. MOBIC [Concomitant]
     Dosage: UNK
  7. CRESTOR [Concomitant]
  8. LORAZEPAM [Concomitant]
  9. LEVOTHYROXINE [Concomitant]
  10. LISINOPRIL [Concomitant]
  11. NIASPAN [Concomitant]
  12. AMLODIPINE [Concomitant]
  13. SINGULAIR [Concomitant]
  14. LYRICA [Concomitant]
     Indication: INSOMNIA
     Dosage: UNK
     Dates: start: 201303

REACTIONS (22)
  - Loss of consciousness [Unknown]
  - Loss of consciousness [Unknown]
  - Septic shock [Unknown]
  - Fall [Unknown]
  - Arthritis [Not Recovered/Not Resolved]
  - Bursitis [Unknown]
  - Exostosis [Unknown]
  - Bone pain [Not Recovered/Not Resolved]
  - Ulcer [Unknown]
  - Asthenia [Unknown]
  - Pain [Unknown]
  - Arthralgia [Not Recovered/Not Resolved]
  - Dehydration [Unknown]
  - Fluid overload [Unknown]
  - Oedema mouth [Recovered/Resolved]
  - Insomnia [Unknown]
  - Back pain [Unknown]
  - Posture abnormal [Unknown]
  - Face oedema [Not Recovered/Not Resolved]
  - Visual acuity reduced [Not Recovered/Not Resolved]
  - Blood glucose decreased [Unknown]
  - Pain [Recovered/Resolved]
